FAERS Safety Report 18650923 (Version 1)
Quarter: 2020Q4

REPORT INFORMATION
  Report Type: Spontaneous
  Country: US (occurrence: US)
  Receive Date: 20201223
  Receipt Date: 20201223
  Transmission Date: 20210114
  Serious: No
  Sender: FDA-Public Use
  Company Number: US-DRREDDYS-USA/USA/20/0129895

PATIENT
  Age: 63 Year
  Sex: Female
  Weight: 120 kg

DRUGS (3)
  1. ESOMEPRAZOLE MAGNESIUM D/R [Suspect]
     Active Substance: ESOMEPRAZOLE MAGNESIUM
     Indication: DYSPEPSIA
     Dosage: BY MOUTH
     Route: 048
  2. ESTROGEN [Concomitant]
     Active Substance: ESTROGENS
     Indication: PRODUCT USED FOR UNKNOWN INDICATION
     Route: 067
  3. AMITRIPTYLINE [Concomitant]
     Active Substance: AMITRIPTYLINE
     Indication: PRODUCT USED FOR UNKNOWN INDICATION
     Route: 048

REACTIONS (4)
  - Drug ineffective [Unknown]
  - Vomiting [Unknown]
  - Product quality issue [Unknown]
  - Product use issue [Unknown]
